FAERS Safety Report 9665739 (Version 1)
Quarter: 2013Q4

REPORT INFORMATION
  Report Type: Spontaneous
  Country: IT (occurrence: IT)
  Receive Date: 20131104
  Receipt Date: 20131104
  Transmission Date: 20140711
  Serious: Yes (Hospitalization)
  Sender: FDA-Public Use
  Company Number: PHHY2013IT123609

PATIENT
  Sex: Male

DRUGS (1)
  1. GLIVEC [Suspect]
     Dosage: UNK UKN, UNK
     Route: 048

REACTIONS (1)
  - Polyneuropathy [Not Recovered/Not Resolved]
